FAERS Safety Report 6697671-6 (Version None)
Quarter: 2010Q2

REPORT INFORMATION
  Report Type: 
  Country: None (occurrence: None)
  Receive Date: 20100426
  Receipt Date: 20100421
  Transmission Date: 20101027
  Serious: Yes (Hospitalization, Other)
  Sender: FDA-Public Use
  Company Number: US-MERCK-1003USA01840

PATIENT
  Age: 68 Year
  Sex: Female

DRUGS (3)
  1. FOSAMAX [Suspect]
     Indication: OSTEOPOROSIS
     Route: 048
     Dates: start: 20050310, end: 20071011
  2. LIPITOR [Concomitant]
     Indication: BLOOD CHOLESTEROL INCREASED
     Route: 065
     Dates: start: 20050224
  3. FOSAMAX PLUS D [Suspect]
     Route: 048

REACTIONS (11)
  - ASTHMA [None]
  - BACTERIAL INFECTION [None]
  - FUNGAL INFECTION [None]
  - HYPERSENSITIVITY [None]
  - INFECTION [None]
  - INFLAMMATION [None]
  - OSTEOARTHRITIS [None]
  - OSTEONECROSIS [None]
  - RHEUMATOID ARTHRITIS [None]
  - TOOTHACHE [None]
  - UPPER RESPIRATORY TRACT INFECTION [None]
